FAERS Safety Report 6760278-6 (Version None)
Quarter: 2010Q2

REPORT INFORMATION
  Report Type: 
  Country: None (occurrence: None)
  Receive Date: 20100608
  Receipt Date: 20100203
  Transmission Date: 20101027
  Serious: No
  Sender: FDA-Public Use
  Company Number: US-BRISTOL-MYERS SQUIBB COMPANY-14962021

PATIENT
  Age: 40 Year
  Sex: Male
  Weight: 104 kg

DRUGS (15)
  1. SUSTIVA [Suspect]
     Indication: HIV INFECTION
     Dates: start: 20100127
  2. SIMVASTATIN [Concomitant]
  3. PROZAC [Concomitant]
  4. XANAX [Concomitant]
  5. LANTUS [Concomitant]
  6. PROPECIA [Concomitant]
  7. TRAZODONE HCL [Concomitant]
  8. TRUVADA [Concomitant]
  9. MELOXICAM [Concomitant]
  10. PREVACID [Concomitant]
  11. CYCLOBENZAPRINE [Concomitant]
  12. NOVOLOG [Concomitant]
  13. VITAMIN B-12 [Concomitant]
  14. ADVAIR DISKUS 100/50 [Concomitant]
  15. FLONASE [Concomitant]

REACTIONS (5)
  - ARTHRALGIA [None]
  - CONSTIPATION [None]
  - DIARRHOEA [None]
  - MOOD ALTERED [None]
  - NIGHTMARE [None]
